FAERS Safety Report 11872364 (Version 2)
Quarter: 2016Q1

REPORT INFORMATION
  Report Type: Spontaneous
  Country: US (occurrence: US)
  Receive Date: 20151228
  Receipt Date: 20160127
  Transmission Date: 20160526
  Serious: Yes (Hospitalization, Other)
  Sender: FDA-Public Use
  Company Number: US-BAYER-2015-493236

PATIENT
  Age: 51 Year
  Sex: Female

DRUGS (20)
  1. TRAMADOL. [Concomitant]
     Active Substance: TRAMADOL
     Dosage: 50 MG, UNK
  2. ULTRAM [Concomitant]
     Active Substance: TRAMADOL HYDROCHLORIDE
  3. COLACE [Concomitant]
     Active Substance: DOCUSATE SODIUM
  4. DULCOLAX (DOCUSATE SODIUM) [Concomitant]
     Active Substance: DOCUSATE SODIUM
  5. FIORICET [Concomitant]
     Active Substance: ACETAMINOPHEN\BUTALBITAL\CAFFEINE
  6. TRAZODONE [Concomitant]
     Active Substance: TRAZODONE HYDROCHLORIDE
  7. POTASSIUM PHOSPHATE [Concomitant]
     Active Substance: POTASSIUM PHOSPHATE
     Dosage: 500 MG AND 250 MG DAILY FOR 4 DAYS
  8. LEVAQUIN [Concomitant]
     Active Substance: LEVOFLOXACIN
     Indication: URINARY TRACT INFECTION
  9. GABAPENTIN. [Concomitant]
     Active Substance: GABAPENTIN
  10. NORCO [Concomitant]
     Active Substance: ACETAMINOPHEN\HYDROCODONE BITARTRATE
  11. METHYLPREDNISOLONE. [Concomitant]
     Active Substance: METHYLPREDNISOLONE
     Dosage: 4 MG, UNK
  12. AZITHROMYCIN ANHYDROUS. [Concomitant]
     Active Substance: AZITHROMYCIN ANHYDROUS
     Dosage: 250 MG, UNK
  13. ZOFRAN [Concomitant]
     Active Substance: ONDANSETRON HYDROCHLORIDE
  14. TOPAMAX [Concomitant]
     Active Substance: TOPIRAMATE
  15. YAZ [Suspect]
     Active Substance: DROSPIRENONE\ETHINYL ESTRADIOL
  16. LORATADINE. [Concomitant]
     Active Substance: LORATADINE
  17. YASMIN [Suspect]
     Active Substance: DROSPIRENONE\ETHINYL ESTRADIOL
  18. ANUCORT-HC [Concomitant]
     Active Substance: HYDROCORTISONE ACETATE
     Dosage: 25 MG, UNK
  19. REGLAN [Concomitant]
     Active Substance: METOCLOPRAMIDE HYDROCHLORIDE
  20. PEPCID [Concomitant]
     Active Substance: FAMOTIDINE

REACTIONS (4)
  - Embolism arterial [None]
  - Haemorrhage intracranial [None]
  - Subdural haemorrhage [None]
  - Transverse sinus thrombosis [None]

NARRATIVE: CASE EVENT DATE: 20100830
